FAERS Safety Report 4392807-4 (Version None)
Quarter: 2004Q3

REPORT INFORMATION
  Report Type: 
  Country: None (occurrence: None)
  Receive Date: 20040702
  Receipt Date: 20040622
  Transmission Date: 20050211
  Serious: Yes (Hospitalization)
  Sender: FDA-Public Use
  Company Number: 04P-056-0259758-00

PATIENT
  Age: 61 Year
  Sex: Male
  Weight: 66 kg

DRUGS (2)
  1. KALETRA [Suspect]
     Indication: HIV INFECTION
     Dosage: 4 CAPSULE, 2 IN 1 DAY, PER ORAL
     Route: 048
     Dates: start: 20040304
  2. EFAVIRENZ [Concomitant]

REACTIONS (6)
  - CONDITION AGGRAVATED [None]
  - HAEMOPHILUS INFECTION [None]
  - LUNG DISORDER [None]
  - PLEURAL EFFUSION [None]
  - PNEUMOCOCCAL INFECTION [None]
  - SINUSITIS [None]
